FAERS Safety Report 19996967 (Version 1)
Quarter: 2021Q4

REPORT INFORMATION
  Report Type: Spontaneous
  Country: US (occurrence: US)
  Receive Date: 20211026
  Receipt Date: 20211026
  Transmission Date: 20220304
  Serious: Yes (Hospitalization)
  Sender: FDA-Public Use
  Company Number: None

PATIENT
  Age: 80 Year
  Sex: Male

DRUGS (4)
  1. CIMZIA [Suspect]
     Active Substance: CERTOLIZUMAB PEGOL
     Indication: Product used for unknown indication
     Dosage: OTHER FREQUENCY:Q4WKS;
     Route: 058
     Dates: start: 20180130
  2. FUROSEMIDE [Concomitant]
     Active Substance: FUROSEMIDE
  3. IPRATROPIUM [Concomitant]
     Active Substance: IPRATROPIUM
  4. LOSARTAN POTASSIUM [Concomitant]
     Active Substance: LOSARTAN POTASSIUM

REACTIONS (2)
  - Chronic obstructive pulmonary disease [None]
  - Pneumonia [None]

NARRATIVE: CASE EVENT DATE: 20211018
